FAERS Safety Report 5045654-4 (Version None)
Quarter: 2006Q3

REPORT INFORMATION
  Report Type: 
  Country: None (occurrence: None)
  Receive Date: 20060707
  Receipt Date: 20060517
  Transmission Date: 20061208
  Serious: Yes (Hospitalization)
  Sender: FDA-Public Use
  Company Number: JP-BOEHRINGER INGELHEIM PHARMACEUTICALS, INC.-2006-BP-05513NB

PATIENT
  Weight: 55 kg

DRUGS (7)
  1. MICARDIS [Suspect]
     Indication: HYPERTENSION
     Route: 048
     Dates: start: 20060322, end: 20060501
  2. MUCOSOLVAN [Concomitant]
     Indication: ASTHMA
     Route: 048
  3. THEOLONG [Concomitant]
     Indication: ASTHMA
     Route: 048
  4. RYTHMODAN R (DISOPYRAMIDE PHOSPHATE) [Concomitant]
     Indication: ARRHYTHMIA
     Route: 048
  5. ONON [Concomitant]
     Indication: ASTHMA
     Route: 048
  6. MYSLEE [Concomitant]
     Indication: INSOMNIA
     Route: 048
  7. PARIET [Concomitant]
     Indication: OESOPHAGITIS
     Route: 048

REACTIONS (2)
  - FATIGUE [None]
  - HEPATIC FUNCTION ABNORMAL [None]
